FAERS Safety Report 24163658 (Version 1)
Quarter: 2024Q3

REPORT INFORMATION
  Report Type: Report from Study
  Country: CA (occurrence: CA)
  Receive Date: 20240801
  Receipt Date: 20240801
  Transmission Date: 20241017
  Serious: Yes (Other)
  Sender: EXELIXIS
  Company Number: CA-IPSEN Group, Research and Development-2024-14418

PATIENT
  Sex: Male

DRUGS (15)
  1. CABOMETYX [Suspect]
     Active Substance: CABOZANTINIB S-MALATE
     Indication: Renal cell carcinoma
     Dosage: 60 MG, QD
     Route: 048
     Dates: start: 20240510
  2. CABOMETYX [Suspect]
     Active Substance: CABOZANTINIB S-MALATE
     Dosage: 40 MG, QD
     Route: 065
     Dates: start: 20240718
  3. METOCLOPRAMIDE [Concomitant]
     Active Substance: METOCLOPRAMIDE
     Dosage: 5 MG
  4. HYDROMORPHONE [Concomitant]
     Active Substance: HYDROMORPHONE
     Dosage: 9 MG
  5. DILTIAZEM [Concomitant]
     Active Substance: DILTIAZEM
     Dosage: 240 MG
  6. Amlodapine [Concomitant]
     Dosage: 5 MG
  7. CALCIUM [Concomitant]
     Active Substance: CALCIUM
     Dosage: 650 MG
  8. VITAMIN D [Concomitant]
     Active Substance: VITAMIN D NOS
     Dosage: 400 MG
  9. SENOKOT [Concomitant]
     Active Substance: SENNOSIDES
     Dosage: 8.6 MG (LAXATIVE)
  10. CANDESARTAN [Concomitant]
     Active Substance: CANDESARTAN
     Dosage: 32 MG
  11. ROSUVASTATIN [Concomitant]
     Active Substance: ROSUVASTATIN\ROSUVASTATIN CALCIUM
     Dosage: 20 MG
  12. POLYETHYLENE GLYCOL 3350 [Concomitant]
     Active Substance: POLYETHYLENE GLYCOL 3350
     Dosage: UNK
  13. METAMUCIL [Concomitant]
     Active Substance: PLANTAGO SEED
     Dosage: UNK
  14. PEPTO-BISMOL [Concomitant]
     Active Substance: BISMUTH SUBSALICYLATE
     Dosage: UNK
  15. XGEVA [Concomitant]
     Active Substance: DENOSUMAB
     Dosage: Q 3 MONTHS

REACTIONS (3)
  - Gastrointestinal toxicity [Unknown]
  - Nausea [Unknown]
  - Vomiting [Unknown]
